FAERS Safety Report 5240382-4 (Version None)
Quarter: 2007Q1

REPORT INFORMATION
  Report Type: 
  Country: None (occurrence: None)
  Receive Date: 20061208
  Receipt Date: 20050928
  Transmission Date: 20070707
  Serious: Yes (Other)
  Sender: FDA-Public Use
  Company Number: 2005UW14515

PATIENT
  Age: 26 Year
  Sex: Female
  Weight: 68.038 kg

DRUGS (1)
  1. CRESTOR [Suspect]
     Dosage: 10 MG ONCE PO
     Route: 048
     Dates: start: 20050927, end: 20050927

REACTIONS (2)
  - DRUG EXPOSURE DURING PREGNANCY [None]
  - VOMITING [None]
